FAERS Safety Report 8611563-4 (Version None)
Quarter: 2012Q3

REPORT INFORMATION
  Report Type: 
  Country: None (occurrence: None)
  Receive Date: 20120822
  Receipt Date: 20120815
  Transmission Date: 20120928
  Serious: Yes (Other)
  Sender: FDA-Public Use
  Company Number: PHHY2012ES070743

PATIENT
  Age: 54 Year
  Sex: Female

DRUGS (4)
  1. CYTARABINE [Suspect]
     Indication: ACUTE MYELOID LEUKAEMIA
     Dosage: 200 MG/M2, UNK
  2. DAUNORUBICIN HCL [Suspect]
     Indication: ACUTE MYELOID LEUKAEMIA
     Dosage: 45 MG/M2, UNK
  3. CYTARABINE [Suspect]
     Dosage: 3 G/M2 EVERY 12 HOURS FOR 4 DAYS
  4. IDARUBICIN HCL [Suspect]
     Indication: ACUTE MYELOID LEUKAEMIA
     Dosage: 12 MG/M2, UNK

REACTIONS (11)
  - ENDOCARDITIS ENTEROCOCCAL [None]
  - OSTEOMYELITIS [None]
  - OSTEONECROSIS [None]
  - BACTERIAL DISEASE CARRIER [None]
  - OSTEONECROSIS OF JAW [None]
  - FEBRILE NEUTROPENIA [None]
  - FACE OEDEMA [None]
  - CANDIDIASIS [None]
  - PAIN IN JAW [None]
  - PURULENT DISCHARGE [None]
  - BONE MARROW FAILURE [None]
